FAERS Safety Report 9859873 (Version 1)
Quarter: 2014Q1

REPORT INFORMATION
  Report Type: Spontaneous
  Country: US (occurrence: US)
  Receive Date: 20140131
  Receipt Date: 20140131
  Transmission Date: 20141002
  Serious: No
  Sender: FDA-Public Use
  Company Number: US-HALOZYME THERAPEUTICS, INC.-2013-US-HYL-00001

PATIENT
  Age: 42 Year
  Sex: Female

DRUGS (2)
  1. HYLENEX RECOMBINANT [Suspect]
     Indication: LOCAL ANAESTHESIA
     Dosage: 0.17 ML, SINGLE
     Dates: start: 20130112, end: 20130112
  2. LIDOCAINE [Suspect]
     Indication: LOCAL ANAESTHESIA
     Dosage: 0.83 ML, SINGLE
     Dates: start: 20130112, end: 20130112

REACTIONS (1)
  - Contusion [Recovered/Resolved]
